FAERS Safety Report 5859088-3 (Version None)
Quarter: 2008Q3

REPORT INFORMATION
  Report Type: 
  Country: None (occurrence: None)
  Receive Date: 20080825
  Receipt Date: 20080811
  Transmission Date: 20090109
  Serious: Yes (Death, Hospitalization)
  Sender: FDA-Public Use
  Company Number: 8036121

PATIENT
  Age: 24 Year
  Sex: Female

DRUGS (6)
  1. PREDNISOLONE [Suspect]
     Indication: LUNG TRANSPLANT
  2. AZATHIOPRINE [Suspect]
     Indication: LUNG TRANSPLANT
     Dosage: PO
     Route: 048
  3. NEORAL [Suspect]
     Indication: LUNG TRANSPLANT
     Dosage: PO
     Route: 048
  4. AMPHOTERICIN B [Concomitant]
  5. ANTIBIOTICS [Concomitant]
  6. ITRACONAZOLE [Concomitant]

REACTIONS (10)
  - ASPERGILLOSIS [None]
  - CARDIAC MURMUR [None]
  - CARDIAC VALVE VEGETATION [None]
  - CIRCULATORY COLLAPSE [None]
  - DYSPNOEA [None]
  - EMBOLISM [None]
  - ENDOPHTHALMITIS [None]
  - INTESTINAL INFARCTION [None]
  - MITRAL VALVE INCOMPETENCE [None]
  - SEPSIS [None]
